FAERS Safety Report 8547355 (Version 5)
Quarter: 2013Q2

REPORT INFORMATION
  Report Type: Spontaneous
  Country: US (occurrence: US)
  Receive Date: 20120504
  Receipt Date: 20130605
  Transmission Date: 20140414
  Serious: Yes (Hospitalization, Other)
  Sender: FDA-Public Use
  Company Number: US-ELI_LILLY_AND_COMPANY-US201104003712

PATIENT
  Age: 68 Year
  Sex: Female
  Weight: 51.25 kg

DRUGS (8)
  1. FORTEO [Suspect]
     Indication: OSTEOPOROSIS
     Dosage: 20 UG, QD
     Dates: start: 20110328, end: 201211
  2. FORTEO [Suspect]
     Dosage: 20 UG, QD
  3. CARTIA                             /00002701/ [Concomitant]
  4. CALCIUM [Concomitant]
  5. VITAMINS /90003601/ [Concomitant]
  6. SPIRIVA [Concomitant]
  7. ADVAIR [Concomitant]
  8. PREDNISONE [Concomitant]

REACTIONS (16)
  - Supraventricular tachycardia [Recovered/Resolved]
  - Pneumonia pseudomonas aeruginosa [Recovered/Resolved]
  - Chronic obstructive pulmonary disease [Recovered/Resolved]
  - Pneumothorax [Unknown]
  - Dyspnoea [Unknown]
  - Loss of consciousness [Unknown]
  - Respiratory failure [Unknown]
  - Tooth loss [Unknown]
  - Injection site erythema [Unknown]
  - Arthralgia [Unknown]
  - Dyspnoea [Unknown]
  - Drug hypersensitivity [Unknown]
  - Herpes zoster [Recovered/Resolved with Sequelae]
  - Mood altered [Unknown]
  - Muscular weakness [Unknown]
  - Neuropathy peripheral [Not Recovered/Not Resolved]
